FAERS Safety Report 6346416-8 (Version None)
Quarter: 2009Q3

REPORT INFORMATION
  Report Type: 
  Country: None (occurrence: None)
  Receive Date: 20090821
  Receipt Date: 20090706
  Transmission Date: 20100115
  Serious: No
  Sender: FDA-Public Use
  Company Number: 8048594

PATIENT
  Sex: Female

DRUGS (1)
  1. CIMZIA [Suspect]
     Dosage: 400 MG /M SC
     Route: 058
     Dates: start: 20080909

REACTIONS (4)
  - COUGH [None]
  - FREQUENT BOWEL MOVEMENTS [None]
  - MENSTRUATION DELAYED [None]
  - UPPER RESPIRATORY TRACT INFECTION [None]
